FAERS Safety Report 13463500 (Version 1)
Quarter: 2017Q2

REPORT INFORMATION
  Report Type: Spontaneous
  Country: GB (occurrence: GB)
  Receive Date: 20170420
  Receipt Date: 20170420
  Transmission Date: 20170830
  Serious: Yes (Other)
  Sender: FDA-Public Use
  Company Number: PHFR2017GB002611

PATIENT
  Age: 41 Year
  Sex: Male
  Weight: 82.55 kg

DRUGS (3)
  1. PARACETAMOL [Concomitant]
     Active Substance: ACETAMINOPHEN
     Indication: PRODUCT USED FOR UNKNOWN INDICATION
     Route: 065
  2. IBUPROFEN. [Concomitant]
     Active Substance: IBUPROFEN
     Indication: PRODUCT USED FOR UNKNOWN INDICATION
     Route: 065
  3. PHENOXYMETHYLPENICILLIN POTASSIUM [Suspect]
     Active Substance: PENICILLIN V POTASSIUM
     Indication: OROPHARYNGEAL PAIN
     Dosage: 250 MG, TID
     Route: 048
     Dates: start: 20170330, end: 20170331

REACTIONS (3)
  - Rash [Not Recovered/Not Resolved]
  - Discomfort [Not Recovered/Not Resolved]
  - Erythema [Not Recovered/Not Resolved]

NARRATIVE: CASE EVENT DATE: 20170330
